FAERS Safety Report 4692185-7 (Version None)
Quarter: 2005Q2

REPORT INFORMATION
  Report Type: 
  Country: None (occurrence: None)
  Receive Date: 20050614
  Receipt Date: 20050607
  Transmission Date: 20051028
  Serious: Yes (Hospitalization)
  Sender: FDA-Public Use
  Company Number: MX-2005-009913

PATIENT
  Age: 33 Year
  Sex: Female

DRUGS (8)
  1. YASMIN [Suspect]
     Indication: ORAL CONTRACEPTION
     Dosage: 1 TAB (S), 1X/DAY, ORAL
     Route: 048
     Dates: start: 20050101, end: 20050606
  2. DIIODOHYDROXYQUINOLINE (DIIODOHYDROXYQUINOLINE) [Concomitant]
  3. DIMETICONE (DIMETICONE) [Concomitant]
  4. RANITIDINE [Concomitant]
  5. OMEPRAZOLE [Concomitant]
  6. PANCREATIN [Concomitant]
  7. ENZYMES (HEMICELLULASE) [Concomitant]
  8. SIMETHICONE (SIMETICONE) [Concomitant]

REACTIONS (3)
  - ABORTION SPONTANEOUS [None]
  - INTRA-UTERINE DEATH [None]
  - PREGNANCY ON ORAL CONTRACEPTIVE [None]
